FAERS Safety Report 21920973 (Version 1)
Quarter: 2023Q1

REPORT INFORMATION
  Report Type: Spontaneous
  Country: US (occurrence: US)
  Receive Date: 20230127
  Receipt Date: 20230127
  Transmission Date: 20230417
  Serious: No
  Sender: FDA-Public Use
  Company Number: US-MYLANLABS-2023M1004324

PATIENT
  Age: 82 Year
  Sex: Female
  Weight: 63.492 kg

DRUGS (1)
  1. MIRTAZAPINE [Suspect]
     Active Substance: MIRTAZAPINE
     Indication: Depression
     Dosage: 1 DOSAGE FORM, HS  (ONE TABLET AT BED TIME)
     Route: 065
     Dates: start: 202205

REACTIONS (3)
  - Hunger [Unknown]
  - Agitation [Unknown]
  - Weight increased [Unknown]

NARRATIVE: CASE EVENT DATE: 20220801
